FAERS Safety Report 15320867 (Version 1)
Quarter: 2018Q4

REPORT INFORMATION
  Report Type: Spontaneous
  Country: US (occurrence: US)
  Receive Date: 20180827
  Receipt Date: 20180827
  Transmission Date: 20190204
  Serious: Yes (Death, Other)
  Sender: FDA-Public Use
  Company Number: US-PFIZER INC-2018343816

PATIENT
  Age: 16 Year

DRUGS (4)
  1. ACETAMINOPHEN W/HYDROCODONE BITARTRATE [Suspect]
     Active Substance: ACETAMINOPHEN\HYDROCODONE BITARTRATE
     Dosage: UNK
     Route: 048
  2. IBUPROFEN. [Suspect]
     Active Substance: IBUPROFEN
     Dosage: UNK
     Route: 048
  3. CHILDREN^S ACETAMINOPHEN [Suspect]
     Active Substance: ACETAMINOPHEN
     Dosage: UNK
     Route: 048
  4. INFANT^S ACETAMINOPHEN DROPS [Suspect]
     Active Substance: ACETAMINOPHEN
     Dosage: UNK
     Route: 048

REACTIONS (11)
  - Alanine aminotransferase increased [Fatal]
  - Completed suicide [Fatal]
  - Aspartate aminotransferase increased [Fatal]
  - Heart rate increased [Fatal]
  - Metabolic acidosis [Fatal]
  - Overdose [Fatal]
  - Blood pressure decreased [Fatal]
  - Body temperature decreased [Fatal]
  - Vomiting [Fatal]
  - Coma [Fatal]
  - Blood methaemoglobin present [Fatal]

NARRATIVE: CASE EVENT DATE: 20030101
